FAERS Safety Report 9236427 (Version 1)
Quarter: 2013Q2

REPORT INFORMATION
  Report Type: Spontaneous
  Country: US (occurrence: US)
  Receive Date: 20130417
  Receipt Date: 20130417
  Transmission Date: 20140414
  Serious: Yes (Hospitalization)
  Sender: FDA-Public Use
  Company Number: PHHY2013US036296

PATIENT
  Age: 54 Year
  Sex: Male

DRUGS (4)
  1. FLUDARABINE [Suspect]
     Indication: CHRONIC LYMPHOCYTIC LEUKAEMIA
     Dosage: UNK
     Dates: start: 2004
  2. RITUXIMAB [Concomitant]
     Indication: CHRONIC LYMPHOCYTIC LEUKAEMIA
  3. BENDAMUSTINE [Concomitant]
     Indication: CHRONIC LYMPHOCYTIC LEUKAEMIA
  4. STEROIDS NOS [Concomitant]

REACTIONS (14)
  - Large intestine perforation [Unknown]
  - Tachypnoea [Unknown]
  - Herpes zoster disseminated [Recovered/Resolved]
  - Pyrexia [Recovered/Resolved]
  - Rash [Recovered/Resolved]
  - Blister [Recovered/Resolved]
  - Pancreatitis viral [Recovered/Resolved]
  - Abdominal pain [Recovered/Resolved]
  - Abdominal distension [Recovered/Resolved]
  - Flank pain [Recovered/Resolved]
  - Flatulence [Recovered/Resolved]
  - Abdominal tenderness [Recovered/Resolved]
  - Hepatitis viral [Recovered/Resolved]
  - Ileus [Recovered/Resolved]
